FAERS Safety Report 7186725-6 (Version None)
Quarter: 2010Q4

REPORT INFORMATION
  Report Type: 
  Country: None (occurrence: None)
  Receive Date: 20101222
  Receipt Date: 20100625
  Transmission Date: 20110411
  Serious: No
  Sender: FDA-Public Use
  Company Number: US-AMGEN-QUU420718

PATIENT

DRUGS (5)
  1. ENBREL [Suspect]
     Indication: PSORIASIS
     Dosage: 25 MG, 2 TIMES/WK
     Dates: end: 20090101
  2. AMLODIPINE BESYLATE [Concomitant]
     Dosage: UNK UNK, UNK
  3. ATORVASTATIN CALCIUM [Concomitant]
     Dosage: UNK UNK, UNK
  4. ESOMEPRAZOLE MAGNESIUM [Concomitant]
     Dosage: UNK UNK, UNK
  5. UNSPECIFIED CONTRACEPTIVE [Concomitant]

REACTIONS (2)
  - DYSPNOEA EXERTIONAL [None]
  - OXYGEN SATURATION DECREASED [None]
